FAERS Safety Report 7435794-4 (Version None)
Quarter: 2011Q2

REPORT INFORMATION
  Report Type: 
  Country: None (occurrence: None)
  Receive Date: 20110418
  Receipt Date: 20110406
  Transmission Date: 20111010
  Serious: Yes (Hospitalization, Other)
  Sender: FDA-Public Use
  Company Number: 026687

PATIENT
  Sex: Male
  Weight: 4.8 kg

DRUGS (10)
  1. CANDIO-HERMAL [Concomitant]
  2. KEPPRA [Suspect]
     Indication: PARTIAL SEIZURES
     Dosage: SINGLE DOSE: 70; DAILY DOSE: 140 ORAL
     Route: 048
     Dates: start: 20110126, end: 20110127
  3. KEPPRA [Suspect]
     Indication: CEREBRAL INFARCTION
     Dosage: SINGLE DOSE: 70; DAILY DOSE: 140 ORAL
     Route: 048
     Dates: start: 20110126, end: 20110127
  4. VIGANTOLETTEN [Concomitant]
  5. LUMINALETTEN [Concomitant]
  6. KEPPRA [Suspect]
     Indication: CEREBRAL INFARCTION
     Dosage: SINGLE DOSE: 30 TOTAL DAILY DOSE: 90 INTRAVENOUS, SINGLE DOSE: 40; DAILY DOSE: 120 INTRAVENOUS
     Route: 042
     Dates: start: 20110117, end: 20110119
  7. KEPPRA [Suspect]
     Indication: PARTIAL SEIZURES
     Dosage: SINGLE DOSE: 30 TOTAL DAILY DOSE: 90 INTRAVENOUS, SINGLE DOSE: 40; DAILY DOSE: 120 INTRAVENOUS
     Route: 042
     Dates: start: 20110117, end: 20110119
  8. KEPPRA [Suspect]
     Indication: CEREBRAL INFARCTION
     Dosage: SINGLE DOSE: 30 TOTAL DAILY DOSE: 90 INTRAVENOUS, SINGLE DOSE: 40; DAILY DOSE: 120 INTRAVENOUS
     Route: 042
     Dates: start: 20110119, end: 20110126
  9. KEPPRA [Suspect]
     Indication: PARTIAL SEIZURES
     Dosage: SINGLE DOSE: 30 TOTAL DAILY DOSE: 90 INTRAVENOUS, SINGLE DOSE: 40; DAILY DOSE: 120 INTRAVENOUS
     Route: 042
     Dates: start: 20110119, end: 20110126
  10. KONAKION [Concomitant]

REACTIONS (7)
  - SYSTEMIC LUPUS ERYTHEMATOSUS [None]
  - AGRANULOCYTOSIS [None]
  - DISSEMINATED INTRAVASCULAR COAGULATION [None]
  - TRANSAMINASES INCREASED [None]
  - RASH MACULAR [None]
  - THROMBOCYTOPENIA [None]
  - NOROVIRUS TEST POSITIVE [None]
